FAERS Safety Report 7436134-7 (Version None)
Quarter: 2011Q2

REPORT INFORMATION
  Report Type: 
  Country: None (occurrence: None)
  Receive Date: 20110425
  Receipt Date: 20110412
  Transmission Date: 20111010
  Serious: Yes (Other)
  Sender: FDA-Public Use
  Company Number: US-BAYER-2011-032534

PATIENT
  Age: 68 Year
  Sex: Female
  Weight: 45 kg

DRUGS (2)
  1. FENTANYL [Suspect]
     Indication: BACK PAIN
     Dosage: 25 MCG, UNK
     Route: 062
  2. PHILLIPS' MILK OF MAGNESIA LIQUID ORIGINAL [Suspect]
     Indication: CONSTIPATION
     Dosage: UNK
     Route: 048

REACTIONS (9)
  - BURNING SENSATION [None]
  - CHEST PAIN [None]
  - CHEST DISCOMFORT [None]
  - BACK PAIN [None]
  - DYSPNOEA [None]
  - HAEMORRHOIDS [None]
  - JOINT SWELLING [None]
  - ABDOMINAL PAIN UPPER [None]
  - CONSTIPATION [None]
